FAERS Safety Report 4413182-2 (Version None)
Quarter: 2004Q3

REPORT INFORMATION
  Report Type: 
  Country: None (occurrence: None)
  Receive Date: 20040802
  Receipt Date: 20040721
  Transmission Date: 20050211
  Serious: Yes (Hospitalization)
  Sender: FDA-Public Use
  Company Number: GB-GLAXOSMITHKLINE-B0340106A

PATIENT
  Age: 80 Year
  Sex: Male

DRUGS (4)
  1. AMOXICILLIN [Suspect]
     Dosage: 250MG PER DAY
     Route: 048
     Dates: start: 20040623
  2. PROPRANOLOL [Concomitant]
     Dosage: 160MG PER DAY
     Route: 048
  3. ENALAPRIL MALEATE [Concomitant]
     Dosage: 5MG PER DAY
     Route: 048
  4. BENDROFLUAZIDE [Concomitant]
     Dosage: 2.5MG PER DAY
     Route: 048

REACTIONS (2)
  - MALAISE [None]
  - RASH PRURITIC [None]
